FAERS Safety Report 6216109-6 (Version None)
Quarter: 2009Q2

REPORT INFORMATION
  Report Type: 
  Country: None (occurrence: None)
  Receive Date: 20090605
  Receipt Date: 20090602
  Transmission Date: 20091009
  Serious: Yes (Hospitalization)
  Sender: FDA-Public Use
  Company Number: FR-BRISTOL-MYERS SQUIBB COMPANY-14645162

PATIENT
  Age: 77 Year
  Sex: Female

DRUGS (6)
  1. ELISOR TABS 20 MG [Suspect]
     Route: 048
  2. PROTELOS [Suspect]
     Route: 048
     Dates: start: 20060101
  3. SERC [Suspect]
  4. VASTAREL [Suspect]
     Route: 048
  5. INIPOMP [Suspect]
     Route: 048
  6. CALCIUM + VITAMIN D [Concomitant]
     Dosage: CALCIUM-VITAMINE D3

REACTIONS (1)
  - CONVULSION [None]
